FAERS Safety Report 5533064-2 (Version None)
Quarter: 2007Q4

REPORT INFORMATION
  Report Type: 
  Country: None (occurrence: None)
  Receive Date: 20071204
  Receipt Date: 20071204
  Transmission Date: 20080405
  Serious: Yes (Other)
  Sender: FDA-Public Use
  Company Number: A0697191A

PATIENT
  Age: 50 Year
  Sex: Male

DRUGS (3)
  1. ALLI [Suspect]
     Route: 048
     Dates: start: 20071113
  2. PRILOSEC [Concomitant]
  3. PAIN MEDICATION [Concomitant]

REACTIONS (3)
  - FAECAL INCONTINENCE [None]
  - FLATULENCE [None]
  - PHARMACEUTICAL PRODUCT COMPLAINT [None]
